FAERS Safety Report 8426277-3 (Version None)
Quarter: 2012Q2

REPORT INFORMATION
  Report Type: 
  Country: None (occurrence: None)
  Receive Date: 20120611
  Receipt Date: 20120528
  Transmission Date: 20120825
  Serious: Yes (Hospitalization)
  Sender: FDA-Public Use
  Company Number: DE-RANBAXY-2012US-57057

PATIENT

DRUGS (6)
  1. ENOXAPARIN [Concomitant]
     Indication: ACUTE CORONARY SYNDROME
  2. TIROFIBAN [Concomitant]
     Indication: ACUTE CORONARY SYNDROME
     Dosage: UNK
     Route: 041
  3. PANTOPRAZOLE [Suspect]
     Indication: PROPHYLAXIS
     Dosage: 40 MG, BID
     Route: 048
  4. ASPIRIN [Concomitant]
     Indication: ACUTE CORONARY SYNDROME
     Dosage: UNK
     Route: 065
  5. CLOPIDOGREL [Concomitant]
     Indication: ACUTE CORONARY SYNDROME
     Dosage: UNK
     Route: 065
  6. PANTOPRAZOLE [Suspect]
     Dosage: UNK
     Route: 058

REACTIONS (1)
  - ANGINA PECTORIS [None]
